FAERS Safety Report 8291994-5 (Version None)
Quarter: 2012Q2

REPORT INFORMATION
  Report Type: 
  Country: None (occurrence: None)
  Receive Date: 20120417
  Receipt Date: 20120411
  Transmission Date: 20120825
  Serious: Yes (Death)
  Sender: FDA-Public Use
  Company Number: FR-ROCHE-1059074

PATIENT
  Age: 65 Year
  Sex: Male

DRUGS (1)
  1. AVASTIN [Suspect]
     Indication: COLON CANCER
     Dates: start: 20090304

REACTIONS (1)
  - DEATH [None]
